FAERS Safety Report 21357110 (Version 1)
Quarter: 2022Q3

REPORT INFORMATION
  Report Type: Spontaneous
  Country: FR (occurrence: FR)
  Receive Date: 20220921
  Receipt Date: 20220921
  Transmission Date: 20221026
  Serious: Yes (Life-Threatening, Other)
  Sender: FDA-Public Use
  Company Number: None

PATIENT

DRUGS (2)
  1. ALPROSTADIL [Suspect]
     Active Substance: ALPROSTADIL
     Indication: Ebstein^s anomaly
     Dosage: 11 NG/KG/MIN(PROSTINE VR, SOLUTION INJECTABLE )
     Route: 042
     Dates: start: 20210726
  2. CITRATE DE CAFEINE [Concomitant]
     Indication: Premedication
     Dosage: UNK(NON PRECISEE.)
     Route: 042
     Dates: start: 20210726

REACTIONS (1)
  - Apnoea [Recovered/Resolved]

NARRATIVE: CASE EVENT DATE: 20210726
